FAERS Safety Report 10395391 (Version 1)
Quarter: 2014Q3

REPORT INFORMATION
  Report Type: Spontaneous
  Country: US (occurrence: US)
  Receive Date: 20140820
  Receipt Date: 20140820
  Transmission Date: 20150326
  Serious: No
  Sender: FDA-Public Use
  Company Number: US-ASTRAZENECA-2014SE59723

PATIENT

DRUGS (2)
  1. SEROQUEL [Suspect]
     Active Substance: QUETIAPINE FUMARATE
     Dosage: UNKNOWN UNK
     Route: 048
  2. CRESTOR [Suspect]
     Active Substance: ROSUVASTATIN CALCIUM
     Dosage: UNKNOWN UNK
     Route: 048

REACTIONS (5)
  - Cardiovascular disorder [Unknown]
  - Lipids increased [Unknown]
  - Weight increased [Unknown]
  - Blood triglycerides increased [Unknown]
  - General physical condition abnormal [Unknown]
